FAERS Safety Report 11642751 (Version 1)
Quarter: 2015Q4

REPORT INFORMATION
  Report Type: Spontaneous
  Country: US (occurrence: US)
  Receive Date: 20151020
  Receipt Date: 20151020
  Transmission Date: 20160304
  Serious: No
  Sender: FDA-Public Use
  Company Number: PHEH2015US020707

PATIENT
  Age: 57 Year
  Sex: Female

DRUGS (1)
  1. GILENYA [Suspect]
     Active Substance: FINGOLIMOD HYDROCHLORIDE
     Indication: MULTIPLE SCLEROSIS
     Dosage: UNK
     Route: 065
     Dates: start: 201505, end: 20151005

REACTIONS (4)
  - Headache [Recovered/Resolved]
  - Chest pain [Recovered/Resolved]
  - Mood swings [Not Recovered/Not Resolved]
  - Feeling jittery [Recovered/Resolved]
